FAERS Safety Report 24527152 (Version 1)
Quarter: 2024Q4

REPORT INFORMATION
  Report Type: Report from Study
  Country: US (occurrence: US)
  Receive Date: 20241021
  Receipt Date: 20241021
  Transmission Date: 20250115
  Serious: No
  Sender: ROCHE
  Company Number: US-ROCHE-3457815

PATIENT
  Age: 68 Year
  Sex: Male

DRUGS (11)
  1. COTELLIC [Suspect]
     Active Substance: COBIMETINIB
     Indication: Lung neoplasm malignant
     Dosage: TAKE 3 TABLET(S) BY MOUTH ORALLY DAILY ON DAYS 1-21 EVERY 28 DAY(S) CYCLE
     Route: 048
  2. ZELBORAF [Suspect]
     Active Substance: VEMURAFENIB
     Indication: Lung neoplasm malignant
     Dosage: TAKE 4 TABLET(S) BY MOUTH TWICE A DAY
     Route: 048
  3. COREG [Concomitant]
     Active Substance: CARVEDILOL
  4. FOLIC ACID [Concomitant]
     Active Substance: FOLIC ACID
  5. XANAX [Concomitant]
     Active Substance: ALPRAZOLAM
  6. XARELTO [Concomitant]
     Active Substance: RIVAROXABAN
  7. AMBIEN [Concomitant]
     Active Substance: ZOLPIDEM TARTRATE
  8. COMPAZINE [Concomitant]
     Active Substance: PROCHLORPERAZINE MALEATE
  9. DILAUDID [Concomitant]
     Active Substance: HYDROMORPHONE HYDROCHLORIDE
  10. LASIX [Concomitant]
     Active Substance: FUROSEMIDE
  11. MORPHINE [Concomitant]
     Active Substance: MORPHINE

REACTIONS (2)
  - Off label use [Unknown]
  - No adverse event [Unknown]
